FAERS Safety Report 14802658 (Version 6)
Quarter: 2019Q3

REPORT INFORMATION
  Report Type: Spontaneous
  Country: US (occurrence: US)
  Receive Date: 20180424
  Receipt Date: 20190702
  Transmission Date: 20191004
  Serious: Yes (Hospitalization)
  Sender: FDA-Public Use
  Company Number: US-ACTELION-A-NJ2018-170476

PATIENT
  Sex: Male

DRUGS (2)
  1. DOFETILIDE. [Concomitant]
     Active Substance: DOFETILIDE
  2. OPSUMIT [Suspect]
     Active Substance: MACITENTAN
     Indication: PULMONARY ARTERIAL HYPERTENSION
     Dosage: 10 MG, QD
     Route: 048
     Dates: start: 20170906

REACTIONS (8)
  - Tinnitus [Not Recovered/Not Resolved]
  - Blood pressure decreased [Not Recovered/Not Resolved]
  - Oxygen saturation decreased [Unknown]
  - Chills [Not Recovered/Not Resolved]
  - Pyrexia [Not Recovered/Not Resolved]
  - Dyspnoea [Unknown]
  - Influenza [Not Recovered/Not Resolved]
  - Lung infection [Unknown]

NARRATIVE: CASE EVENT DATE: 2018
